FAERS Safety Report 21905927 (Version 1)
Quarter: 2023Q1

REPORT INFORMATION
  Report Type: Report from Study
  Country: US (occurrence: US)
  Receive Date: 20230124
  Receipt Date: 20230124
  Transmission Date: 20230418
  Serious: Yes (Other)
  Sender: FDA-Public Use
  Company Number: US-ABBVIE-4280451

PATIENT
  Sex: Male

DRUGS (1)
  1. VENCLEXTA [Suspect]
     Active Substance: VENETOCLAX
     Indication: Idiopathic pulmonary fibrosis
     Dosage: FORM STRENGTH 50 MILLIGRAM
     Route: 048

REACTIONS (2)
  - Idiopathic pulmonary fibrosis [Unknown]
  - Myelodysplastic syndrome [Unknown]
